FAERS Safety Report 9026855 (Version 9)
Quarter: 2013Q1

REPORT INFORMATION
  Report Type: Spontaneous
  Country: PT (occurrence: PT)
  Receive Date: 20130123
  Receipt Date: 20130327
  Transmission Date: 20140127
  Serious: Yes (Hospitalization, Other)
  Sender: FDA-Public Use
  Company Number: PT-PFIZER INC-2013021978

PATIENT
  Age: 70 Year
  Sex: Male

DRUGS (9)
  1. INSPRA [Suspect]
     Indication: CARDIAC FAILURE
     Dosage: 12.5 MG, 1X/DAY (HALF TABLET OF 25 MG)
     Route: 048
     Dates: start: 20130104, end: 20130110
  2. CORDARONE [Interacting]
     Indication: CARDIAC FAILURE
     Dosage: 200 MG, 1X/DAY
     Dates: start: 2012, end: 20130110
  3. VARFINE [Concomitant]
     Dosage: UNK
  4. LASIX [Concomitant]
     Indication: CARDIAC FAILURE
     Dosage: UNK
  5. PULMICORT [Concomitant]
     Dosage: UNK
  6. ONBREZ [Concomitant]
     Dosage: 300 UG, UNK
  7. PRADIF [Concomitant]
     Dosage: UNK
  8. CAPTOPRIL [Concomitant]
     Indication: CARDIAC FAILURE
     Dosage: UNK
  9. NEBIVOLOL [Concomitant]
     Indication: CARDIAC FAILURE
     Dosage: UNK

REACTIONS (6)
  - Drug interaction [Recovered/Resolved]
  - Arthralgia [Recovered/Resolved]
  - Vertigo [Recovered/Resolved]
  - Peripheral motor neuropathy [Not Recovered/Not Resolved]
  - Apathy [Recovered/Resolved]
  - Emotional distress [Recovered/Resolved]
